FAERS Safety Report 15736815 (Version 2)
Quarter: 2019Q1

REPORT INFORMATION
  Report Type: Spontaneous
  Country: AU (occurrence: AU)
  Receive Date: 20181218
  Receipt Date: 20190103
  Transmission Date: 20190417
  Serious: Yes (Hospitalization, Other)
  Sender: FDA-Public Use
  Company Number: AU-MYLANLABS-2018M1038077

PATIENT
  Age: 61 Year
  Sex: Male

DRUGS (1)
  1. CLOZARIL [Suspect]
     Active Substance: CLOZAPINE
     Indication: SCHIZOPHRENIA
     Dosage: 500 MILLIGRAM
     Route: 048
     Dates: start: 19930702, end: 201812

REACTIONS (6)
  - Neutrophil count increased [Unknown]
  - White blood cell count increased [Recovering/Resolving]
  - Troponin increased [Unknown]
  - C-reactive protein increased [Unknown]
  - Myocarditis [Unknown]
  - Hypotension [Unknown]

NARRATIVE: CASE EVENT DATE: 2018
